FAERS Safety Report 10929752 (Version 3)
Quarter: 2015Q2

REPORT INFORMATION
  Report Type: Spontaneous
  Country: JP (occurrence: JP)
  Receive Date: 20150319
  Receipt Date: 20150413
  Transmission Date: 20150821
  Serious: Yes (Life-Threatening, Hospitalization, Other)
  Sender: FDA-Public Use
  Company Number: JP-PFIZER INC-2015093658

PATIENT
  Age: 52 Year
  Sex: Female
  Weight: 32 kg

DRUGS (4)
  1. FOSPHENYTOIN SODIUM. [Suspect]
     Active Substance: FOSPHENYTOIN SODIUM
     Indication: EPILEPSY
     Dosage: 750 MG, 1X/DAY
     Route: 042
     Dates: start: 20141001, end: 20141001
  2. FOSPHENYTOIN SODIUM. [Suspect]
     Active Substance: FOSPHENYTOIN SODIUM
     Indication: STATUS EPILEPTICUS
  3. FOSPHENYTOIN SODIUM. [Suspect]
     Active Substance: FOSPHENYTOIN SODIUM
     Indication: SEIZURE
     Dosage: 225 MG, 1X/DAY
     Route: 042
     Dates: start: 20141002, end: 20141003
  4. DIAZEPAM. [Concomitant]
     Active Substance: DIAZEPAM
     Indication: SEIZURE
     Dosage: 5 MG, UNK
     Route: 042
     Dates: start: 20141001

REACTIONS (3)
  - Rhabdomyolysis [Recovered/Resolved]
  - Ileus paralytic [Recovering/Resolving]
  - Hepatic function abnormal [Unknown]

NARRATIVE: CASE EVENT DATE: 20141003
